FAERS Safety Report 7928332-0 (Version None)
Quarter: 2011Q4

REPORT INFORMATION
  Report Type: 
  Country: None (occurrence: None)
  Receive Date: 20111118
  Receipt Date: 20111109
  Transmission Date: 20120403
  Serious: Yes (Hospitalization)
  Sender: FDA-Public Use
  Company Number: US-BAYER-2011-057062

PATIENT
  Age: 19 Year
  Sex: Female
  Weight: 46.259 kg

DRUGS (3)
  1. PROMETHAZINE [Concomitant]
  2. VICODIN [Concomitant]
  3. YAZ [Suspect]
     Indication: CONTRACEPTION
     Dosage: UNK
     Dates: start: 20080601, end: 20090901

REACTIONS (5)
  - BILIARY COLIC [None]
  - CHOLECYSTITIS CHRONIC [None]
  - ABDOMINAL SYMPTOM [None]
  - CHOLELITHIASIS [None]
  - PAIN [None]
